FAERS Safety Report 14930885 (Version 1)
Quarter: 2018Q2

REPORT INFORMATION
  Report Type: Spontaneous
  Country: US (occurrence: US)
  Receive Date: 20180524
  Receipt Date: 20180524
  Transmission Date: 20180711
  Serious: No
  Sender: FDA-Public Use
  Company Number: US-BAUSCH-BL-2017-013820

PATIENT
  Age: 69 Year
  Sex: Female

DRUGS (2)
  1. PROLENSA [Suspect]
     Active Substance: BROMFENAC SODIUM
     Dosage: IN THE EYES
     Route: 047
     Dates: start: 20170430
  2. PROLENSA [Suspect]
     Active Substance: BROMFENAC SODIUM
     Indication: PROPHYLAXIS
     Dosage: IN THE EYES
     Route: 047
     Dates: start: 20170425, end: 20170429

REACTIONS (2)
  - No adverse event [Unknown]
  - Incorrect dose administered [Unknown]
